FAERS Safety Report 8091581-8 (Version None)
Quarter: 2012Q1

REPORT INFORMATION
  Report Type: 
  Country: None (occurrence: None)
  Receive Date: 20120131
  Receipt Date: 20120127
  Transmission Date: 20120608
  Serious: No
  Sender: FDA-Public Use
  Company Number: US-PFIZER INC-2012023547

PATIENT
  Sex: Male
  Weight: 105.67 kg

DRUGS (2)
  1. CHANTIX [Suspect]
     Indication: SMOKING CESSATION THERAPY
     Dosage: 0.5 MG, 1X/DAY
     Route: 048
     Dates: start: 20111231
  2. CHANTIX [Suspect]
     Dosage: UNK
     Route: 048

REACTIONS (1)
  - DIARRHOEA [None]
